FAERS Safety Report 23646204 (Version 3)
Quarter: 2024Q2

REPORT INFORMATION
  Report Type: Report from Study
  Country: US (occurrence: US)
  Receive Date: 20240319
  Receipt Date: 20240515
  Transmission Date: 20240715
  Serious: Yes (Other)
  Sender: FDA-Public Use
  Company Number: US-TAKEDA-2018TUS032633

PATIENT
  Age: 33 Year
  Sex: Female

DRUGS (3)
  1. VEDOLIZUMAB [Suspect]
     Active Substance: VEDOLIZUMAB
     Indication: Colitis ulcerative
     Dosage: 300 MILLIGRAM
     Route: 042
     Dates: start: 201602
  2. VEDOLIZUMAB [Suspect]
     Active Substance: VEDOLIZUMAB
     Indication: Colitis ulcerative
     Dosage: 108 MILLIGRAM, Q2WEEKS
     Route: 058
     Dates: start: 202402
  3. VEDOLIZUMAB [Suspect]
     Active Substance: VEDOLIZUMAB
     Indication: Colitis ulcerative
     Dosage: 108 MILLIGRAM, Q2WEEKS
     Route: 058
     Dates: start: 202402

REACTIONS (7)
  - Colitis ulcerative [Not Recovered/Not Resolved]
  - Injection site swelling [Not Recovered/Not Resolved]
  - Double stranded DNA antibody positive [Unknown]
  - Stress [Unknown]
  - Drug intolerance [Unknown]
  - Product dose omission issue [Unknown]
  - Urticaria [Unknown]

NARRATIVE: CASE EVENT DATE: 20181001
